FAERS Safety Report 22070381 (Version 1)
Quarter: 2023Q1

REPORT INFORMATION
  Report Type: Spontaneous
  Country: AU (occurrence: AU)
  Receive Date: 20230307
  Receipt Date: 20230307
  Transmission Date: 20230417
  Serious: Yes (Hospitalization)
  Sender: FDA-Public Use
  Company Number: AU-MYLANLABS-2023M1024215

PATIENT
  Age: 52 Year
  Sex: Male

DRUGS (8)
  1. CARBIDOPA\ENTACAPONE\LEVODOPA [Suspect]
     Active Substance: CARBIDOPA\ENTACAPONE\LEVODOPA
     Indication: Parkinson^s disease
     Dosage: UNK, LEVODOPA EQUIVALENT DAILY DOSE (LEDD) ???
     Route: 065
  2. PRAMIPEXOLE [Suspect]
     Active Substance: PRAMIPEXOLE
     Indication: Parkinson^s disease
     Dosage: UNK, LEVODOPA EQUIVALENT DAILY DOSE (LEDD) OF ?..
     Route: 065
  3. PRAMIPEXOLE [Suspect]
     Active Substance: PRAMIPEXOLE
     Dosage: 1.5 MILLIGRAM
     Route: 065
  4. PRAMIPEXOLE [Suspect]
     Active Substance: PRAMIPEXOLE
     Dosage: 2.25 MILLIGRAM, LEDD WITH AMANTADINE
     Route: 065
  5. SELEGILINE [Suspect]
     Active Substance: SELEGILINE
     Indication: Product used for unknown indication
     Dosage: UNK, LEVODOPA EQUIVALENT DAILY DOSE (LEDD) OF?..
     Route: 065
  6. LEVODOPA [Suspect]
     Active Substance: LEVODOPA
     Indication: Parkinson^s disease
     Dosage: UNK, LEVODOPA EQUIVALENT DAILY DOSE (LEDD) ?..
     Route: 065
  7. AMANTADINE [Suspect]
     Active Substance: AMANTADINE
     Indication: Parkinson^s disease
     Dosage: UNK, LEVODOPA EQUIVALENT DAILY DOSE (LEDD) ?..
     Route: 065
  8. AMANTADINE [Suspect]
     Active Substance: AMANTADINE
     Dosage: UNK, 25 MG LEDD WITH PRAMIPEXOLE
     Route: 065

REACTIONS (2)
  - Dysarthria [Recovered/Resolved]
  - Drug ineffective [Unknown]
